FAERS Safety Report 13164650 (Version 2)
Quarter: 2017Q1

REPORT INFORMATION
  Report Type: Report from Study
  Country: None (occurrence: US)
  Receive Date: 20170130
  Receipt Date: 20170313
  Transmission Date: 20170428
  Serious: Yes (Hospitalization)
  Sender: FDA-Public Use
  Company Number: US-ABBVIE-17K-163-1849095-00

PATIENT
  Age: 74 Year
  Sex: Male
  Weight: 98.06 kg

DRUGS (2)
  1. HUMIRA [Suspect]
     Active Substance: ADALIMUMAB
     Route: 058
     Dates: start: 20161006
  2. HUMIRA [Suspect]
     Active Substance: ADALIMUMAB
     Indication: PSORIASIS
     Route: 058
     Dates: start: 20160929, end: 20160929

REACTIONS (2)
  - Urinary tract infection [Recovering/Resolving]
  - Renal cyst [Recovering/Resolving]

NARRATIVE: CASE EVENT DATE: 201612
